FAERS Safety Report 5680701-8 (Version None)
Quarter: 2008Q1

REPORT INFORMATION
  Report Type: 
  Country: None (occurrence: None)
  Receive Date: 20080326
  Receipt Date: 20080313
  Transmission Date: 20080703
  Serious: Yes (Death, Life-Threatening, Hospitalization)
  Sender: FDA-Public Use
  Company Number: US-ELI_LILLY_AND_COMPANY-US200711000967

PATIENT
  Sex: Male

DRUGS (7)
  1. TERIPARATIDE [Suspect]
     Indication: OSTEOPOROSIS
     Dosage: 20 UNK, DAILY (1/D)
     Route: 058
     Dates: start: 20061120, end: 20071024
  2. VICODIN [Concomitant]
  3. PROCRIT [Concomitant]
  4. MEGAMIN [Concomitant]
  5. CALCIUM [Concomitant]
     Dosage: 600 UNK, DAILY (1/D)
  6. ONE A DAY ESSENTIAL [Concomitant]
  7. ANDROGEL [Concomitant]

REACTIONS (4)
  - ASPIRATION [None]
  - DEHYDRATION [None]
  - HYPERCALCAEMIA [None]
  - MYOCARDIAL INFARCTION [None]
